FAERS Safety Report 9400141 (Version 2)
Quarter: 2013Q3

REPORT INFORMATION
  Report Type: Report from Study
  Country: US (occurrence: US)
  Receive Date: 20130715
  Receipt Date: 20130724
  Transmission Date: 20140515
  Serious: Yes (Hospitalization)
  Sender: FDA-Public Use
  Company Number: US-ACTELION-A-NJ2013-79182

PATIENT
  Age: 76 Year
  Sex: Female

DRUGS (13)
  1. TRACLEER [Suspect]
     Indication: PULMONARY ARTERIAL HYPERTENSION
     Dosage: 125 MG, BID
     Route: 048
     Dates: start: 200310
  2. SILDENAFIL [Concomitant]
     Dosage: 40 MG, TID
     Dates: start: 201305
  3. TYVASO [Concomitant]
     Dosage: UNK, QID
     Dates: start: 2011
  4. POTASSIUM [Concomitant]
     Dosage: UNK, PRN
  5. PAROXETINE [Concomitant]
     Dosage: 10 MG, UNK
  6. ALPRAZOLAM [Concomitant]
     Dosage: 0.5 MG, UNK
  7. FUROSEMIDE [Concomitant]
     Dosage: 40 MG, PRN
  8. AMLODIPINE [Concomitant]
     Dosage: 7.5 MG, UNK
  9. WARFARIN [Concomitant]
     Dosage: UNK
  10. CYCLOBENZAPRINE [Concomitant]
     Dosage: 5 MG, BID
  11. OMEPRAZOLE [Concomitant]
     Dosage: 40 MG, UNK
  12. TYLENOL [Concomitant]
  13. OXYGEN [Concomitant]

REACTIONS (7)
  - Renal failure acute [Recovering/Resolving]
  - Renal impairment [Recovering/Resolving]
  - Gout [Recovering/Resolving]
  - Pulmonary arterial hypertension [Recovering/Resolving]
  - Condition aggravated [Recovering/Resolving]
  - Dyspnoea [Recovering/Resolving]
  - Oedema peripheral [Recovering/Resolving]
